FAERS Safety Report 8404213-3 (Version None)
Quarter: 2012Q2

REPORT INFORMATION
  Report Type: 
  Country: None (occurrence: None)
  Receive Date: 20120601
  Receipt Date: 20120525
  Transmission Date: 20120825
  Serious: Yes (Other)
  Sender: FDA-Public Use
  Company Number: US-JNJFOC-20120411806

PATIENT
  Sex: Female
  Weight: 68.04 kg

DRUGS (8)
  1. CERTIZINE [Concomitant]
     Indication: MULTIPLE ALLERGIES
  2. SIMPONI [Suspect]
     Route: 058
     Dates: start: 20110101
  3. VESICARE [Concomitant]
  4. METHOTREXATE [Concomitant]
     Route: 048
     Dates: start: 20110501
  5. TEKTURNA [Concomitant]
     Indication: HYPERTENSION
     Dates: start: 20100101
  6. FOLIC ACID [Concomitant]
  7. SIMPONI [Suspect]
     Indication: RHEUMATOID ARTHRITIS
     Route: 058
     Dates: start: 20120501
  8. PROLIEF [Concomitant]

REACTIONS (3)
  - EYE PRURITUS [None]
  - SKIN ULCER [None]
  - BRONCHITIS BACTERIAL [None]
